FAERS Safety Report 17803364 (Version 2)
Quarter: 2020Q2

REPORT INFORMATION
  Report Type: Spontaneous
  Country: US (occurrence: US)
  Receive Date: 20200519
  Receipt Date: 20200626
  Transmission Date: 20200714
  Serious: Yes (Hospitalization)
  Sender: FDA-Public Use
  Company Number: US-VERASTEM-2020-00090

PATIENT

DRUGS (3)
  1. COPIKTRA [Suspect]
     Active Substance: DUVELISIB
     Dosage: 25 MG, BID
     Route: 048
     Dates: start: 2020
  2. COPIKTRA [Suspect]
     Active Substance: DUVELISIB
     Dosage: 25 MG, BID
     Route: 048
     Dates: start: 2019, end: 2020
  3. COPIKTRA [Suspect]
     Active Substance: DUVELISIB
     Indication: PERIPHERAL T-CELL LYMPHOMA UNSPECIFIED
     Dosage: 25 MG, BID
     Route: 048
     Dates: start: 201908, end: 2020

REACTIONS (7)
  - Immune-mediated pneumonitis [Recovered/Resolved]
  - COVID-19 [Recovering/Resolving]
  - Product use in unapproved indication [Recovered/Resolved]
  - Autoimmune dermatitis [Recovered/Resolved]
  - Fatigue [Recovered/Resolved]
  - Presyncope [Recovering/Resolving]
  - Pyrexia [Recovered/Resolved]

NARRATIVE: CASE EVENT DATE: 2019
